FAERS Safety Report 7580094-5 (Version None)
Quarter: 2011Q2

REPORT INFORMATION
  Report Type: 
  Country: None (occurrence: None)
  Receive Date: 20110629
  Receipt Date: 20110620
  Transmission Date: 20111010
  Serious: Yes (Hospitalization, Disabling)
  Sender: FDA-Public Use
  Company Number: FR-ELI_LILLY_AND_COMPANY-FR201106005542

PATIENT
  Sex: Female

DRUGS (11)
  1. HERCEPTIN [Concomitant]
     Indication: BREAST CANCER
     Dosage: UNK
     Route: 042
     Dates: start: 20101217, end: 20110107
  2. ESIDRIX [Concomitant]
     Indication: HYPERTENSION
  3. GLUCOPHAGE [Concomitant]
     Indication: TYPE 2 DIABETES MELLITUS
  4. EPIRUBICIN [Concomitant]
     Indication: BREAST CANCER
  5. CYMBALTA [Suspect]
     Indication: MAJOR DEPRESSION
     Dosage: UNK, UNKNOWN
     Route: 048
  6. DIAMICRON [Concomitant]
     Indication: TYPE 2 DIABETES MELLITUS
  7. CYCLOPHOSPHAMIDE [Concomitant]
     Indication: BREAST CANCER
  8. HERCEPTIN [Concomitant]
     Dosage: UNK
     Route: 042
     Dates: start: 20110107
  9. ENALAPRIL MALEATE [Concomitant]
     Indication: HYPERTENSION
  10. TAXOTERE [Concomitant]
     Indication: BREAST CANCER
     Dosage: 160 MG, UNK
     Route: 042
     Dates: start: 20101217, end: 20110107
  11. TAXOTERE [Concomitant]
     Dosage: 160 MG, UNK
     Route: 042
     Dates: start: 20110107

REACTIONS (5)
  - OEDEMA [None]
  - UROSEPSIS [None]
  - CUSHINGOID [None]
  - ARTHRALGIA [None]
  - PALMAR-PLANTAR ERYTHRODYSAESTHESIA SYNDROME [None]
